FAERS Safety Report 16218361 (Version 1)
Quarter: 2019Q2

REPORT INFORMATION
  Report Type: Spontaneous
  Country: DE (occurrence: DE)
  Receive Date: 20190419
  Receipt Date: 20190419
  Transmission Date: 20190711
  Serious: Yes (Other)
  Sender: FDA-Public Use
  Company Number: DE-AKRON, INC.-2066053

PATIENT
  Sex: Male

DRUGS (2)
  1. COSOPT [Suspect]
     Active Substance: DORZOLAMIDE HYDROCHLORIDE\TIMOLOL MALEATE
     Route: 047
  2. ZIOPTAN [Suspect]
     Active Substance: TAFLUPROST
     Route: 047

REACTIONS (8)
  - Salivary hypersecretion [Unknown]
  - Obsessive-compulsive disorder [Not Recovered/Not Resolved]
  - Lacrimation increased [Unknown]
  - Mood swings [Not Recovered/Not Resolved]
  - Depression [Not Recovered/Not Resolved]
  - Dyspnoea [Unknown]
  - Visual impairment [Unknown]
  - Eye oedema [Unknown]
